FAERS Safety Report 16872873 (Version 13)
Quarter: 2022Q2

REPORT INFORMATION
  Report Type: Report from Study
  Country: US (occurrence: None)
  Receive Date: 20191001
  Receipt Date: 20220510
  Transmission Date: 20220721
  Serious: Yes (Death, Hospitalization, Other)
  Sender: FDA-Public Use
  Company Number: US-ROCHE-2418181

PATIENT
  Age: 73 Year
  Sex: Male
  Weight: 95.4 kg

DRUGS (10)
  1. FLUOROURACIL [Suspect]
     Active Substance: FLUOROURACIL
     Indication: Colorectal cancer metastatic
     Dosage: ON 13/FEB/2020, THE RECENT DOSE  (3975 MG) OF 5-FLUOROURACIL WAS ADMINISTERED PRIOR TO AE. CYCLE 1:
     Route: 042
     Dates: start: 20190829, end: 20200127
  2. ATEZOLIZUMAB [Suspect]
     Active Substance: ATEZOLIZUMAB
     Indication: Colorectal cancer metastatic
     Dosage: ON 13/FEB/2020, THE RECENT DOSE (840 MG) OF ATEZOLIZUMAB WAS ADMINISTERED PRIOR TO AE. ON 29/JAN/202
     Route: 041
     Dates: start: 20190829, end: 20200829
  3. BEVACIZUMAB [Suspect]
     Active Substance: BEVACIZUMAB
     Indication: Colorectal cancer metastatic
     Dosage: CYCLE 1: 5MG/KG IV OVER 90 MINUTES ON DAY 1 LAST ADMINISTERED DATE: 29/AUG/2019
     Route: 042
     Dates: start: 20190829
  4. OXALIPLATIN [Suspect]
     Active Substance: OXALIPLATIN
     Indication: Colorectal cancer metastatic
     Dosage: ON 13/FEB/2020, THE RECENT DOSE (130 MG) OF OXALIPLATIN WAS ADMINISTERED PRIOR TO AE. CYCLE 1:85MG/M
     Route: 042
     Dates: start: 20190829, end: 20200127
  5. LEUCOVORIN CALCIUM [Suspect]
     Active Substance: LEUCOVORIN CALCIUM
     Indication: Colorectal cancer metastatic
     Dosage: ON 13/FEB/2020, THE RECENT DOSE (796 MG) OF LEUCOVORIN CALCIUM WAS ADMINISTERED PRIOR TO AE. 400MG/M
     Route: 042
     Dates: start: 20190829, end: 20200127
  6. SODIUM BICARBONATE [Concomitant]
     Active Substance: SODIUM BICARBONATE
  7. ONDANSETRON [Concomitant]
     Active Substance: ONDANSETRON
  8. PALONOSETRON [Concomitant]
     Active Substance: PALONOSETRON
  9. LOPERAMIDE [Concomitant]
     Active Substance: LOPERAMIDE
  10. GLIPIZIDE [Concomitant]
     Active Substance: GLIPIZIDE

REACTIONS (11)
  - Small intestinal obstruction [Recovered/Resolved]
  - Aspiration [Recovered/Resolved]
  - Fatigue [Recovered/Resolved]
  - Hyponatraemia [Recovered/Resolved]
  - Fatigue [Recovered/Resolved]
  - Acute kidney injury [Recovered/Resolved]
  - Death [Fatal]
  - Diarrhoea [Recovered/Resolved]
  - Pneumonia [Not Recovered/Not Resolved]
  - Oesophagitis [Unknown]
  - Platelet count decreased [Recovered/Resolved]

NARRATIVE: CASE EVENT DATE: 20190831
